FAERS Safety Report 18714040 (Version 1)
Quarter: 2021Q1

REPORT INFORMATION
  Report Type: Spontaneous
  Country: US (occurrence: US)
  Receive Date: 20210107
  Receipt Date: 20210107
  Transmission Date: 20210419
  Serious: Yes (Other)
  Sender: FDA-Public Use
  Company Number: US-PURDUE-USA-2020-0195669

PATIENT
  Sex: Female

DRUGS (3)
  1. OXYCONTIN [Suspect]
     Active Substance: OXYCODONE HYDROCHLORIDE
     Indication: PAIN
     Dosage: UNK, UNK, Q12H
     Route: 048
  2. OXYCONTIN [Suspect]
     Active Substance: OXYCODONE HYDROCHLORIDE
     Dosage: 270 MG, DAILY
     Route: 048
  3. MS CONTIN [Suspect]
     Active Substance: MORPHINE SULFATE
     Indication: PAIN
     Dosage: UNKNOWN
     Route: 048

REACTIONS (8)
  - Fall [Unknown]
  - Injury [Unknown]
  - Drug dependence [Unknown]
  - Suicidal ideation [Unknown]
  - Asphyxia [Unknown]
  - Cognitive disorder [Unknown]
  - Drug withdrawal convulsions [Unknown]
  - Memory impairment [Unknown]
